FAERS Safety Report 5729008-0 (Version None)
Quarter: 2008Q2

REPORT INFORMATION
  Report Type: 
  Country: None (occurrence: None)
  Receive Date: 20080505
  Receipt Date: 20080505
  Transmission Date: 20081010
  Serious: Yes (Life-Threatening, Disabling, Other)
  Sender: FDA-Public Use
  Company Number: None

PATIENT
  Sex: Male
  Weight: 106.5953 kg

DRUGS (1)
  1. CHANTIX [Suspect]
     Indication: SMOKING CESSATION THERAPY
     Dosage: 1 MORN 1 NITE 2 ADAY FOR 25 DAYS
     Dates: start: 20071220, end: 20080115

REACTIONS (7)
  - ABNORMAL DREAMS [None]
  - BRAIN INJURY [None]
  - COORDINATION ABNORMAL [None]
  - CRYING [None]
  - FEAR [None]
  - SUICIDAL IDEATION [None]
  - VISUAL DISTURBANCE [None]
